FAERS Safety Report 5207317-1 (Version None)
Quarter: 2007Q1

REPORT INFORMATION
  Report Type: 
  Country: None (occurrence: None)
  Receive Date: 20070110
  Receipt Date: 20061226
  Transmission Date: 20070707
  Serious: Yes (Death, Life-Threatening)
  Sender: FDA-Public Use
  Company Number: 2006JP005490

PATIENT
  Age: 84 Year
  Sex: Female
  Weight: 50 kg

DRUGS (4)
  1. TACROLIMUS CAPSULES(TACROLIMUS) CAPSULE [Suspect]
     Indication: RHEUMATOID ARTHRITIS
     Dosage: 1 MG, ORAL; SEE IMAGE
     Route: 048
     Dates: start: 20051021, end: 20051026
  2. TACROLIMUS CAPSULES(TACROLIMUS) CAPSULE [Suspect]
     Indication: RHEUMATOID ARTHRITIS
     Dosage: 1 MG, ORAL; SEE IMAGE
     Route: 048
     Dates: start: 20051027, end: 20051228
  3. PREDNISOLONE [Concomitant]
  4. RIMATIL (BUCILLAMINE) [Concomitant]

REACTIONS (4)
  - CARDIAC FAILURE [None]
  - GENERAL PHYSICAL HEALTH DETERIORATION [None]
  - PNEUMONIA [None]
  - RESPIRATORY FAILURE [None]
